FAERS Safety Report 8301465-5 (Version None)
Quarter: 2012Q2

REPORT INFORMATION
  Report Type: 
  Country: None (occurrence: None)
  Receive Date: 20120420
  Receipt Date: 20120418
  Transmission Date: 20120825
  Serious: Yes (Other)
  Sender: FDA-Public Use
  Company Number: PHHY2012TN031046

PATIENT
  Age: 6 Year
  Sex: Male

DRUGS (2)
  1. CEFOTAXIME [Suspect]
  2. COTRIM [Suspect]

REACTIONS (1)
  - VASCULITIS [None]
